FAERS Safety Report 9260655 (Version 3)
Quarter: 2013Q2

REPORT INFORMATION
  Report Type: Spontaneous
  Country: DK (occurrence: DK)
  Receive Date: 20130429
  Receipt Date: 20130510
  Transmission Date: 20140414
  Serious: Yes (Other)
  Sender: FDA-Public Use
  Company Number: DK-JNJFOC-20130411459

PATIENT
  Age: 66 Year
  Sex: Female
  Weight: 70 kg

DRUGS (15)
  1. REMICADE [Suspect]
     Indication: ANKYLOSING SPONDYLITIS
     Route: 042
     Dates: start: 20030805, end: 20040210
  2. REMICADE [Suspect]
     Indication: ANKYLOSING SPONDYLITIS
     Route: 042
     Dates: start: 20040511, end: 20041130
  3. REMICADE [Suspect]
     Indication: ANKYLOSING SPONDYLITIS
     Route: 042
     Dates: start: 20050804, end: 20100201
  4. SIMPONI [Suspect]
     Indication: ANKYLOSING SPONDYLITIS
     Route: 058
     Dates: start: 20100603, end: 20111001
  5. EMTHEXATE [Suspect]
     Indication: ANKYLOSING SPONDYLITIS
     Route: 065
     Dates: start: 20030805
  6. HUMIRA [Suspect]
     Indication: ANKYLOSING SPONDYLITIS
     Route: 065
     Dates: start: 20050111, end: 20050111
  7. ENBREL [Suspect]
     Indication: ANKYLOSING SPONDYLITIS
     Route: 065
     Dates: start: 20040511, end: 20041130
  8. ENBREL [Suspect]
     Indication: ANKYLOSING SPONDYLITIS
     Dosage: DRUG TREATMENT DURATION WAS 408 DAYS
     Route: 065
     Dates: start: 20100216, end: 20110331
  9. PREDNISOLON [Concomitant]
     Route: 065
     Dates: start: 20050111, end: 20050111
  10. PREDNISOLON [Concomitant]
     Route: 065
     Dates: start: 20050511, end: 20050511
  11. PREDNISOLON [Concomitant]
     Route: 065
     Dates: start: 20111027
  12. PREDNISOLON [Concomitant]
     Route: 065
     Dates: start: 20040511, end: 20040511
  13. PREDNISOLON [Concomitant]
     Route: 065
     Dates: start: 20100216, end: 20110331
  14. PREDNISOLON [Concomitant]
     Route: 065
     Dates: end: 20110624
  15. SALAZOPYRIN [Concomitant]
     Route: 065
     Dates: start: 20100216, end: 20110624

REACTIONS (1)
  - Malignant melanoma [Recovered/Resolved]
